FAERS Safety Report 9910982 (Version 2)
Quarter: 2015Q3

REPORT INFORMATION
  Report Type: Spontaneous
  Country: US (occurrence: US)
  Receive Date: 20140219
  Receipt Date: 20150812
  Transmission Date: 20151125
  Serious: No
  Sender: FDA-Public Use
  Company Number: US-GILEAD-2012-0054475

PATIENT
  Age: 47 Year
  Sex: Female

DRUGS (2)
  1. TYVASO [Concomitant]
     Active Substance: TREPROSTINIL
  2. LETAIRIS [Suspect]
     Active Substance: AMBRISENTAN
     Indication: PRODUCT USED FOR UNKNOWN INDICATION
     Dosage: UNK
     Route: 048

REACTIONS (9)
  - Muscle spasms [Unknown]
  - Pain in extremity [Unknown]
  - Dizziness [Unknown]
  - Oropharyngeal pain [Unknown]
  - Nausea [Unknown]
  - Pain in jaw [Unknown]
  - Back pain [Unknown]
  - Throat irritation [Unknown]
  - Headache [Unknown]
